FAERS Safety Report 5509022-0 (Version None)
Quarter: 2007Q4

REPORT INFORMATION
  Report Type: 
  Country: None (occurrence: None)
  Receive Date: 20071107
  Receipt Date: 20071102
  Transmission Date: 20080405
  Serious: Yes (Hospitalization)
  Sender: FDA-Public Use
  Company Number: IT-BRISTOL-MYERS SQUIBB COMPANY-13968441

PATIENT
  Age: 66 Year
  Sex: Female

DRUGS (4)
  1. IXABEPILONE [Suspect]
     Indication: BREAST CANCER METASTATIC
     Dosage: STOP DATE: 26OCT07
     Route: 042
     Dates: start: 20071026, end: 20071026
  2. BEVACIZUMAB [Suspect]
     Indication: BREAST CANCER METASTATIC
     Dosage: STOP DATE: 5OCT07
     Route: 042
     Dates: start: 20071005, end: 20071005
  3. UNIPRIL [Concomitant]
     Dates: start: 20010101
  4. LASIX [Concomitant]
     Dates: start: 20071022

REACTIONS (3)
  - HEADACHE [None]
  - HYPERTENSION [None]
  - VOMITING [None]
